FAERS Safety Report 24568124 (Version 1)
Quarter: 2024Q4

REPORT INFORMATION
  Report Type: Report from Study
  Country: US (occurrence: US)
  Receive Date: 20241031
  Receipt Date: 20241031
  Transmission Date: 20250115
  Serious: Yes (Hospitalization, Other)
  Sender: GILEAD
  Company Number: US-GILEAD-2024-0692530

PATIENT
  Age: 35 Year
  Sex: Male

DRUGS (1)
  1. AZTREONAM LYSINE [Suspect]
     Active Substance: AZTREONAM LYSINE
     Indication: Cystic fibrosis
     Dosage: 75MG INHALE 1 VIAL VIA ALTERA NEBULIZER 3 TIMES DAILY FOR 28 DAYS ON AND 28 DAYS OFF
     Route: 055

REACTIONS (2)
  - COVID-19 [Unknown]
  - Cystic fibrosis [Not Recovered/Not Resolved]
